FAERS Safety Report 7099242-9 (Version None)
Quarter: 2010Q4

REPORT INFORMATION
  Report Type: 
  Country: None (occurrence: None)
  Receive Date: 20101104
  Receipt Date: 20101026
  Transmission Date: 20110411
  Serious: Yes (Death)
  Sender: FDA-Public Use
  Company Number: 107823

PATIENT
  Age: 80 Year
  Sex: Female

DRUGS (1)
  1. DILTIAZEM HYDROCHLORIDE [Suspect]
     Dosage: 100MGIVPB
     Route: 042
     Dates: start: 20101017

REACTIONS (1)
  - INFUSION SITE ERYTHEMA [None]
